FAERS Safety Report 18512122 (Version 3)
Quarter: 2021Q4

REPORT INFORMATION
  Report Type: Report from Study
  Country: JP (occurrence: JP)
  Receive Date: 20201117
  Receipt Date: 20211228
  Transmission Date: 20220304
  Serious: Yes (Death, Other)
  Sender: FDA-Public Use
  Company Number: JP-PFIZER INC-2020450244

PATIENT

DRUGS (2)
  1. IRINOTECAN HYDROCHLORIDE [Suspect]
     Active Substance: IRINOTECAN HYDROCHLORIDE
     Indication: Neuroendocrine carcinoma
     Dosage: 60 MG/M2, CYCLIC (ON DAYS 1, 8, 15 EVERY 4 WEEKS UP TO FOUR CYCLES)
     Route: 042
  2. CISPLATIN [Suspect]
     Active Substance: CISPLATIN
     Indication: Neuroendocrine carcinoma
     Dosage: 60 MG/M2, CYCLIC (ON DAY 1, EVERY 4 WEEKS UP TO FOUR CYCLES)
     Route: 042

REACTIONS (1)
  - Tracheal haemorrhage [Fatal]
